FAERS Safety Report 7028098-5 (Version None)
Quarter: 2010Q4

REPORT INFORMATION
  Report Type: 
  Country: None (occurrence: None)
  Receive Date: 20101005
  Receipt Date: 20100928
  Transmission Date: 20110411
  Serious: Yes (Hospitalization)
  Sender: FDA-Public Use
  Company Number: DE-TEVA-250297ISR

PATIENT
  Age: 40 Year
  Sex: Female

DRUGS (1)
  1. METHOTREXATE [Suspect]
     Indication: POLYARTHRITIS
     Dates: start: 19990501, end: 20010101

REACTIONS (3)
  - DEPRESSION [None]
  - DRUG TOXICITY [None]
  - SUICIDE ATTEMPT [None]
